FAERS Safety Report 7666388-3 (Version None)
Quarter: 2011Q3

REPORT INFORMATION
  Report Type: 
  Country: None (occurrence: None)
  Receive Date: 20110806
  Receipt Date: 20110322
  Transmission Date: 20111222
  Serious: No
  Sender: FDA-Public Use
  Company Number: US-ABBOTT-11P-163-0713262-00

PATIENT
  Sex: Male
  Weight: 81.72 kg

DRUGS (2)
  1. ASPIRIN [Concomitant]
     Indication: PRODUCT USED FOR UNKNOWN INDICATION
     Dosage: EVERY MORNING
     Route: 048
  2. NIASPAN [Suspect]
     Indication: HIGH DENSITY LIPOPROTEIN DECREASED
     Dosage: 500MG EVERY AM AND 1000MG EVERY EVENING
     Route: 048
     Dates: start: 20110301

REACTIONS (2)
  - FEELING HOT [None]
  - FLUSHING [None]
